FAERS Safety Report 5195796-8 (Version None)
Quarter: 2006Q4

REPORT INFORMATION
  Report Type: 
  Country: None (occurrence: None)
  Receive Date: 20061227
  Receipt Date: 20061227
  Transmission Date: 20070319
  Serious: No
  Sender: FDA-Public Use
  Company Number: None

PATIENT
  Age: 36 Year
  Sex: Female
  Weight: 63.5036 kg

DRUGS (2)
  1. SERTRALINE HCL [Suspect]
     Indication: ANXIETY
     Dosage: 100MG 1 DAILY PO
     Route: 048
     Dates: start: 20061026, end: 20061224
  2. SERTRALINE HCL [Suspect]
     Indication: DEPRESSION
     Dosage: 100MG 1 DAILY PO
     Route: 048
     Dates: start: 20061026, end: 20061224

REACTIONS (3)
  - FOREIGN BODY TRAUMA [None]
  - PAIN [None]
  - PHARMACEUTICAL PRODUCT COMPLAINT [None]
